FAERS Safety Report 6969398-4 (Version None)
Quarter: 2010Q3

REPORT INFORMATION
  Report Type: 
  Country: None (occurrence: None)
  Receive Date: 20100902
  Receipt Date: 20100824
  Transmission Date: 20110219
  Serious: Yes (Hospitalization)
  Sender: FDA-Public Use
  Company Number: 2008JP003666

PATIENT
  Age: 42 Year
  Sex: Female
  Weight: 88.1 kg

DRUGS (28)
  1. TACROLIMUS [Suspect]
     Indication: LUPUS NEPHRITIS
     Dosage: 3 MG, /D, ORAL
     Route: 048
     Dates: start: 20070628
  2. BUMETANIDE [Suspect]
     Indication: LUPUS NEPHRITIS
     Dosage: 1 MG, /D, ORAL
     Route: 048
     Dates: start: 20070627, end: 20070719
  3. LASIX [Suspect]
     Indication: LUPUS NEPHRITIS
     Dosage: 20 MG, /D, ORAL
     Route: 048
     Dates: end: 20070731
  4. ALDACTONE [Suspect]
     Indication: LUPUS NEPHRITIS
     Dosage: 254 MG, /D, ORAL
     Route: 048
     Dates: end: 20070731
  5. PREDNISOLONE [Suspect]
     Indication: LUPUS NEPHRITIS
     Dosage: 5 MG, /D, ORAL
     Route: 048
  6. HALOPERIDOL [Suspect]
     Dosage: 0.75 MG, /D, ORAL
     Route: 048
  7. PAXIL [Suspect]
     Dosage: 20 MG, /D, ORAL
     Route: 048
  8. DIOVAN [Suspect]
     Dosage: 80 MG, /D, ORAL; 40 MG, /D, ORAL
     Route: 048
     Dates: end: 20070729
  9. DIOVAN [Suspect]
     Dosage: 80 MG, /D, ORAL; 40 MG, /D, ORAL
     Route: 048
     Dates: start: 20070730, end: 20090206
  10. CELECOXIB [Suspect]
     Dosage: 200 MG, /D, ORAL
     Route: 048
     Dates: start: 20081212, end: 20081225
  11. TOLEDOMIN (MILNACIPRAN HYDROCHLORIDE) PER ORAL NOS [Suspect]
     Dosage: 100 MG, /D, ORAL
     Route: 048
     Dates: start: 20081225
  12. VALPROATE SODIUM [Suspect]
     Dosage: 400 MG, /D, ORAL
     Route: 048
     Dates: start: 20080708
  13. ONEALFA (ALFACALCIDOL) [Concomitant]
  14. LOSARTAN POTASSIUM [Concomitant]
  15. TIZANIDINE HCL [Concomitant]
  16. PURSENNID (SENNOSIDE A+B) [Concomitant]
  17. NITRAZEPAM [Concomitant]
  18. LENDORM [Concomitant]
  19. MS ONSHIPPU TAPE [Concomitant]
  20. HALCOIN (TRIAZOLAM) [Concomitant]
  21. NOVORAPID FLEXPEN (INSULIN ASPART) [Concomitant]
  22. SELBEX (TEPRENONE) [Concomitant]
  23. PRIMPERAN (METCLOPRAMIODE HYDROCHLORIDE) [Concomitant]
  24. NEUROTROPIN (SMALLPOX VACCINE) [Concomitant]
  25. ALOSENN (ACHILLEA MILLEFOLIUM, RUBIA TINCTORUM ROOT TINCTURE, SENNA AL [Concomitant]
  26. GABAPENTIN [Concomitant]
  27. GASCON (DIMETICONE) [Concomitant]
  28. KETOPROFEN [Concomitant]

REACTIONS (13)
  - ABDOMINAL DISTENSION [None]
  - ALANINE AMINOTRANSFERASE INCREASED [None]
  - ASPARTATE AMINOTRANSFERASE INCREASED [None]
  - BLOOD CREATININE INCREASED [None]
  - BLOOD PRESSURE DECREASED [None]
  - BLOOD URIC ACID INCREASED [None]
  - CONDITION AGGRAVATED [None]
  - CONSTIPATION [None]
  - DIABETES MELLITUS [None]
  - FIBROMYALGIA [None]
  - GASTROENTERITIS [None]
  - NASOPHARYNGITIS [None]
  - OEDEMA [None]
